FAERS Safety Report 18487476 (Version 2)
Quarter: 2020Q4

REPORT INFORMATION
  Report Type: Spontaneous
  Country: JP (occurrence: JP)
  Receive Date: 20201110
  Receipt Date: 20201116
  Transmission Date: 20210114
  Serious: Yes (Hospitalization, Other)
  Sender: FDA-Public Use
  Company Number: JP-ALLERGAN-2043352US

PATIENT
  Sex: Female

DRUGS (2)
  1. MAGMITT [Concomitant]
     Active Substance: MAGNESIUM OXIDE
     Indication: PRODUCT USED FOR UNKNOWN INDICATION
     Dosage: UNK
     Route: 065
     Dates: start: 20200912
  2. LINACLOTIDE - BP [Suspect]
     Active Substance: LINACLOTIDE
     Indication: CONSTIPATION
     Dosage: ACTUAL: 0.5 MG/DAY, UNKNOWN FREQ
     Route: 048
     Dates: start: 20200917, end: 20200918

REACTIONS (2)
  - Off label use [Unknown]
  - Large intestine perforation [Recovered/Resolved]

NARRATIVE: CASE EVENT DATE: 20200918
